FAERS Safety Report 6823045-0 (Version None)
Quarter: 2010Q3

REPORT INFORMATION
  Report Type: 
  Country: None (occurrence: None)
  Receive Date: 20100708
  Receipt Date: 20100628
  Transmission Date: 20110219
  Serious: Yes (Hospitalization)
  Sender: FDA-Public Use
  Company Number: B0662688A

PATIENT
  Sex: Male

DRUGS (12)
  1. ZELITREX [Suspect]
     Indication: HERPES OPHTHALMIC
     Dosage: 1G THREE TIMES PER DAY
     Route: 048
     Dates: start: 20100603, end: 20100603
  2. ZOVIRAX [Suspect]
     Indication: HERPES OPHTHALMIC
     Dosage: 750MG THREE TIMES PER DAY
     Route: 042
     Dates: start: 20100531, end: 20100602
  3. ZOVIRAX [Concomitant]
     Route: 047
     Dates: start: 20100531
  4. LOXEN [Concomitant]
     Dosage: 50MG UNKNOWN
     Route: 065
  5. KARDEGIC [Concomitant]
     Dosage: 160MG UNKNOWN
     Route: 065
  6. TAHOR [Concomitant]
     Dosage: 20MG UNKNOWN
     Route: 065
  7. ESIDRIX [Concomitant]
     Dosage: 25MG UNKNOWN
     Route: 065
  8. BACLOFEN [Concomitant]
     Route: 065
  9. CELIPROLOL [Concomitant]
     Route: 065
  10. VITAMIN A [Concomitant]
     Indication: HERPES OPHTHALMIC
     Route: 047
     Dates: start: 20100531
  11. ARTIFICIAL TEARS [Concomitant]
     Indication: HERPES OPHTHALMIC
     Route: 047
     Dates: start: 20100531
  12. PHYSIOLOGICAL SERUM [Concomitant]
     Route: 042
     Dates: start: 20100531, end: 20100602

REACTIONS (5)
  - BLOOD CREATININE INCREASED [None]
  - CREATININE RENAL CLEARANCE DECREASED [None]
  - RENAL FAILURE ACUTE [None]
  - SPEECH DISORDER [None]
  - TRANSIENT ISCHAEMIC ATTACK [None]
